FAERS Safety Report 18478906 (Version 1)
Quarter: 2020Q4

REPORT INFORMATION
  Report Type: Other
  Country: GB (occurrence: GB)
  Receive Date: 20201109
  Receipt Date: 20201109
  Transmission Date: 20210114
  Serious: Yes (Hospitalization)
  Sender: FDA-Public Use
  Company Number: GB-EMCURE PHARMACEUTICALS LTD-2020-EPL-001795

PATIENT
  Age: 58 Year
  Sex: Male
  Weight: 127 kg

DRUGS (16)
  1. FUROSEMIDE. [Suspect]
     Active Substance: FUROSEMIDE
     Indication: PRODUCT USED FOR UNKNOWN INDICATION
     Dosage: 40 MILLIGRAM
     Route: 048
     Dates: start: 20160517, end: 20201014
  2. SIMVASTATIN. [Concomitant]
     Active Substance: SIMVASTATIN
  3. GLICLAZIDE [Concomitant]
     Active Substance: GLICLAZIDE
  4. ALLOPURINOL. [Concomitant]
     Active Substance: ALLOPURINOL
  5. PREGABALIN. [Concomitant]
     Active Substance: PREGABALIN
  6. TENSIPINE MR [Concomitant]
     Active Substance: NIFEDIPINE
  7. LISINOPRIL. [Suspect]
     Active Substance: LISINOPRIL
     Indication: PRODUCT USED FOR UNKNOWN INDICATION
     Dosage: 30 MILLIGRAM DAILY
     Route: 048
     Dates: start: 20170628, end: 20201014
  8. DABIGATRAN [Concomitant]
     Active Substance: DABIGATRAN
  9. COCODAMOL [Concomitant]
     Active Substance: ACETAMINOPHEN\CODEINE PHOSPHATE
  10. QUININE BISULFATE [Concomitant]
     Active Substance: QUININE BISULFATE
  11. FEXOFENADINE HYDROCHLORIDE. [Concomitant]
     Active Substance: FEXOFENADINE HYDROCHLORIDE
  12. BISOPROLOL [Concomitant]
     Active Substance: BISOPROLOL
  13. OMEPRAZOLE. [Concomitant]
     Active Substance: OMEPRAZOLE
  14. SPIRONOLACTONE. [Concomitant]
     Active Substance: SPIRONOLACTONE
  15. METFORMIN [Suspect]
     Active Substance: METFORMIN HYDROCHLORIDE
     Indication: PRODUCT USED FOR UNKNOWN INDICATION
     Dosage: 2 GRAM DAILY
     Route: 048
     Dates: start: 20101008, end: 20201014
  16. DIGOXIN. [Concomitant]
     Active Substance: DIGOXIN

REACTIONS (2)
  - Dehydration [Recovering/Resolving]
  - Acute kidney injury [Recovering/Resolving]

NARRATIVE: CASE EVENT DATE: 20201013
